FAERS Safety Report 9236785 (Version 1)
Quarter: 2013Q2

REPORT INFORMATION
  Report Type: Spontaneous
  Country: US (occurrence: None)
  Receive Date: 20130415
  Receipt Date: 20130415
  Transmission Date: 20140414
  Serious: Yes (Hospitalization)
  Sender: FDA-Public Use
  Company Number: US-007957

PATIENT
  Age: 68 Year
  Sex: Male
  Weight: 95.7 kg

DRUGS (4)
  1. CHLORAMBUCIL [Suspect]
     Indication: CHRONIC LYMPHOCYTIC LEUKAEMIA
     Route: 048
     Dates: start: 20090903
  2. OFATUMUMAB [Suspect]
     Indication: CHRONIC LYMPHOCYTIC LEUKAEMIA
     Route: 042
     Dates: start: 20090903
  3. DOXAZOSINE [Suspect]
  4. LISINOPRIL [Suspect]

REACTIONS (4)
  - Road traffic accident [None]
  - Radius fracture [None]
  - Loss of consciousness [None]
  - Syncope [None]
